FAERS Safety Report 21323706 (Version 1)
Quarter: 2022Q3

REPORT INFORMATION
  Report Type: Spontaneous
  Country: CN (occurrence: HK)
  Receive Date: 20220912
  Receipt Date: 20220912
  Transmission Date: 20221027
  Serious: Yes (Hospitalization)
  Sender: FDA-Public Use
  Company Number: CN-BIOXCEL THERAPEUTICS, INC.-2022BIX00054

PATIENT
  Age: 7 Year
  Sex: Male

DRUGS (1)
  1. DEXMEDETOMIDINE [Suspect]
     Active Substance: DEXMEDETOMIDINE
     Dosage: UNK UNK, ONCE
     Route: 048

REACTIONS (3)
  - Loss of consciousness [Recovered/Resolved]
  - Accidental exposure to product [Recovered/Resolved]
  - Overdose [Recovered/Resolved]
